FAERS Safety Report 16486006 (Version 1)
Quarter: 2019Q2

REPORT INFORMATION
  Report Type: Spontaneous
  Country: US (occurrence: US)
  Receive Date: 20190627
  Receipt Date: 20190627
  Transmission Date: 20190711
  Serious: Yes (Hospitalization, Other)
  Sender: FDA-Public Use
  Company Number: US-JNJFOC-20190625562

PATIENT
  Age: 61 Year
  Sex: Female

DRUGS (2)
  1. INVOKANA [Suspect]
     Active Substance: CANAGLIFLOZIN
     Route: 048
     Dates: end: 201704
  2. INVOKANA [Suspect]
     Active Substance: CANAGLIFLOZIN
     Indication: TYPE 2 DIABETES MELLITUS
     Route: 048
     Dates: start: 201508

REACTIONS (3)
  - Osteomyelitis [Unknown]
  - Toe amputation [Unknown]
  - Cellulitis [Unknown]

NARRATIVE: CASE EVENT DATE: 20170418
